FAERS Safety Report 9896914 (Version 2)
Quarter: 2014Q1

REPORT INFORMATION
  Report Type: Report from Study
  Country: US (occurrence: US)
  Receive Date: 20140214
  Receipt Date: 20140214
  Transmission Date: 20141002
  Serious: Yes (Hospitalization)
  Sender: FDA-Public Use
  Company Number: US-ROCHE-1177339

PATIENT
  Age: 73 Year
  Sex: Female
  Weight: 66 kg

DRUGS (2)
  1. ERLOTINIB [Suspect]
     Indication: BRONCHIOLOALVEOLAR CARCINOMA
     Dosage: MOST RECENT DOSE OF DRUG ON 26/DEC/2013.
     Route: 065
     Dates: start: 20110601
  2. BEVACIZUMAB [Suspect]
     Indication: BRONCHIOLOALVEOLAR CARCINOMA
     Dosage: MOST RECENT DOSE OF DRUG ON 06/DEC/2013.
     Route: 042
     Dates: start: 20110601

REACTIONS (4)
  - Cardiac failure [Unknown]
  - Dyspnoea [Recovered/Resolved]
  - Hypoxia [Recovered/Resolved]
  - Respiratory failure [Recovered/Resolved]
